FAERS Safety Report 20641679 (Version 2)
Quarter: 2022Q2

REPORT INFORMATION
  Report Type: Report from Study
  Country: US (occurrence: US)
  Receive Date: 20220328
  Receipt Date: 20220620
  Transmission Date: 20220721
  Serious: No
  Sender: FDA-Public Use
  Company Number: US-NOVARTISTESTPH-NVSC2022US068572

PATIENT
  Sex: Female

DRUGS (1)
  1. COSENTYX [Suspect]
     Active Substance: SECUKINUMAB
     Indication: Rash
     Dosage: 300 MG, QMO
     Route: 058
     Dates: start: 20211012

REACTIONS (2)
  - Rash [Unknown]
  - Product use in unapproved indication [Unknown]
